FAERS Safety Report 6151382-4 (Version None)
Quarter: 2009Q2

REPORT INFORMATION
  Report Type: 
  Country: None (occurrence: None)
  Receive Date: 20090410
  Receipt Date: 20090401
  Transmission Date: 20091009
  Serious: Yes (Hospitalization, Other)
  Sender: FDA-Public Use
  Company Number: DE-ABBOTT-09P-062-0565558-00

PATIENT
  Sex: Male
  Weight: 105 kg

DRUGS (2)
  1. HUMIRA [Suspect]
     Indication: CROHN'S DISEASE
     Route: 058
     Dates: start: 20080712
  2. ANALGESICS [Concomitant]
     Indication: PAIN

REACTIONS (1)
  - ENTEROCUTANEOUS FISTULA [None]
